FAERS Safety Report 5258982-4 (Version None)
Quarter: 2007Q1

REPORT INFORMATION
  Report Type: 
  Country: None (occurrence: None)
  Receive Date: 20061217
  Receipt Date: 20060721
  Transmission Date: 20070707
  Serious: Yes (Other)
  Sender: FDA-Public Use
  Company Number: US-JNJFOC-20060700674

PATIENT
  Age: 31 Year
  Sex: Female
  Weight: 90.2658 kg

DRUGS (3)
  1. LEVAQUIN [Suspect]
     Indication: ACUTE SINUSITIS
     Dosage: 500 MG, 1 IN 1 DAY, ORAL
     Route: 048
     Dates: start: 20060515, end: 20060614
  2. FLONASE [Concomitant]
  3. ALLEGRA (FEXOFENADINE HYDROCHLORIDE) TABLET [Concomitant]

REACTIONS (1)
  - NEUROPATHY PERIPHERAL [None]
